FAERS Safety Report 20407564 (Version 5)
Quarter: 2022Q2

REPORT INFORMATION
  Report Type: Report from Study
  Country: CA (occurrence: CA)
  Receive Date: 20220131
  Receipt Date: 20220627
  Transmission Date: 20220721
  Serious: Yes (Other)
  Sender: FDA-Public Use
  Company Number: CA-JNJFOC-20211112729

PATIENT
  Age: 68 Year
  Sex: Female
  Weight: 67.2 kg

DRUGS (1)
  1. REMICADE [Suspect]
     Active Substance: INFLIXIMAB
     Indication: Rheumatoid arthritis

REACTIONS (13)
  - Cataract [Recovered/Resolved]
  - Blood iron decreased [Unknown]
  - Pneumonia [Not Recovered/Not Resolved]
  - COVID-19 [Unknown]
  - Vascular access complication [Not Recovered/Not Resolved]
  - Skin laceration [Not Recovered/Not Resolved]
  - Accident at home [Unknown]
  - Device issue [Unknown]
  - Excessive granulation tissue [Unknown]
  - Dyspnoea [Not Recovered/Not Resolved]
  - Chest discomfort [Unknown]
  - Pain in extremity [Unknown]
  - Oral candidiasis [Unknown]

NARRATIVE: CASE EVENT DATE: 20211104
